FAERS Safety Report 6413491-1 (Version None)
Quarter: 2009Q4

REPORT INFORMATION
  Report Type: 
  Country: None (occurrence: None)
  Receive Date: 20091026
  Receipt Date: 20091012
  Transmission Date: 20100525
  Serious: Yes (Other)
  Sender: FDA-Public Use
  Company Number: PHHY2009DK23830

PATIENT
  Sex: Female

DRUGS (2)
  1. LEPONEX [Suspect]
     Indication: SCHIZOPHRENIA
     Dosage: UNK
     Dates: start: 20080401
  2. LEPONEX [Suspect]
     Dosage: 700 MG DAILY

REACTIONS (2)
  - BLOOD PROLACTIN INCREASED [None]
  - MENSTRUAL DISORDER [None]
